FAERS Safety Report 10456845 (Version 1)
Quarter: 2014Q3

REPORT INFORMATION
  Report Type: Spontaneous
  Country: US (occurrence: None)
  Receive Date: 20140828
  Receipt Date: 20140828
  Transmission Date: 20150326
  Serious: Yes (Other)
  Sender: FDA-Public Use
  Company Number: PHEH2014US001160

PATIENT
  Age: 64 Year
  Sex: Male

DRUGS (9)
  1. SOMAVERT (PEGVISOMANT) [Concomitant]
  2. RADIATION (NO INGREDIENTS/SUBSTANCES) [Concomitant]
  3. SYNTHROID [Concomitant]
     Active Substance: LEVOTHYROXINE SODIUM
  4. MULTI-VIT (VITAMINS NOS) [Concomitant]
     Active Substance: VITAMINS
  5. SANDOSTATIN LAR DEPOT [Suspect]
     Active Substance: OCTREOTIDE ACETATE
     Indication: ACROMEGALY
     Dosage: 20 MG, MONTHLY, TWICE IN ONE DAY, INTRAMUSCULAR
     Route: 030
  6. ANDROGEL [Concomitant]
     Active Substance: TESTOSTERONE
  7. COQ10 (UBIDECARENONE) [Concomitant]
     Active Substance: UBIDECARENONE
  8. LISINOPRIL (LISINOPRIL) [Concomitant]
     Active Substance: LISINOPRIL
  9. HYDROCORTISONE (HYDROCORTISONE) [Concomitant]
     Active Substance: HYDROCORTISONE

REACTIONS (3)
  - Neoplasm [None]
  - Amnesia [None]
  - Blood cortisol abnormal [None]
